FAERS Safety Report 13753442 (Version 4)
Quarter: 2017Q4

REPORT INFORMATION
  Report Type: Spontaneous
  Country: JP (occurrence: JP)
  Receive Date: 20170713
  Receipt Date: 20171030
  Transmission Date: 20180320
  Serious: Yes (Other)
  Sender: FDA-Public Use
  Company Number: JP-JNJFOC-20170706733

PATIENT
  Age: 37 Year
  Sex: Male

DRUGS (14)
  1. IMURAN [Suspect]
     Active Substance: AZATHIOPRINE
     Indication: PRODUCT USED FOR UNKNOWN INDICATION
     Route: 065
     Dates: start: 201412, end: 201501
  2. IMURAN [Suspect]
     Active Substance: AZATHIOPRINE
     Indication: PRODUCT USED FOR UNKNOWN INDICATION
     Route: 065
     Dates: start: 200601, end: 201010
  3. PREDONINE [Concomitant]
     Active Substance: PREDNISOLONE
     Route: 065
     Dates: start: 201412
  4. REMICADE [Suspect]
     Active Substance: INFLIXIMAB
     Indication: CROHN^S DISEASE
     Dosage: 5 MG/KG
     Route: 042
     Dates: start: 200707
  5. ADALIMUMAB [Suspect]
     Active Substance: ADALIMUMAB
     Indication: PRODUCT USED FOR UNKNOWN INDICATION
     Route: 065
     Dates: start: 20160705, end: 20160918
  6. PENTASA [Concomitant]
     Active Substance: MESALAMINE
     Route: 048
     Dates: start: 200601, end: 201209
  7. POSTERISAN [Concomitant]
     Active Substance: LIDOCAINE
     Route: 065
     Dates: start: 200601
  8. REMICADE [Suspect]
     Active Substance: INFLIXIMAB
     Indication: CROHN^S DISEASE
     Route: 042
     Dates: end: 201606
  9. LAC-B [Concomitant]
     Active Substance: BIFIDOBACTERIUM SPP.
     Route: 065
     Dates: start: 200601
  10. BETAMETHASONE. [Concomitant]
     Active Substance: BETAMETHASONE
     Route: 054
     Dates: start: 200601
  11. REMICADE [Suspect]
     Active Substance: INFLIXIMAB
     Indication: CROHN^S DISEASE
     Dosage: 10 MG/KG
     Route: 042
     Dates: start: 201306
  12. ADALIMUMAB [Suspect]
     Active Substance: ADALIMUMAB
     Indication: PRODUCT USED FOR UNKNOWN INDICATION
     Route: 065
     Dates: start: 20160614
  13. REMICADE [Suspect]
     Active Substance: INFLIXIMAB
     Indication: CROHN^S DISEASE
     Dosage: 10 MG/KG
     Route: 042
     Dates: start: 20150519, end: 20150519
  14. REMICADE [Suspect]
     Active Substance: INFLIXIMAB
     Indication: CROHN^S DISEASE
     Route: 042

REACTIONS (3)
  - Pyoderma gangrenosum [Recovered/Resolved]
  - Liver disorder [Unknown]
  - Anal abscess [Unknown]

NARRATIVE: CASE EVENT DATE: 200801
